FAERS Safety Report 4775052-X (Version None)
Quarter: 2005Q3

REPORT INFORMATION
  Report Type: 
  Country: None (occurrence: None)
  Receive Date: 20050921
  Receipt Date: 20050906
  Transmission Date: 20060218
  Serious: Yes (Other)
  Sender: FDA-Public Use
  Company Number: DEWYE954206SEP05

PATIENT
  Sex: Female
  Weight: 65 kg

DRUGS (1)
  1. ENBREL [Suspect]
     Indication: RHEUMATOID ARTHRITIS
     Route: 058
     Dates: start: 20050815

REACTIONS (3)
  - CONCOMITANT DISEASE PROGRESSION [None]
  - CONDITION AGGRAVATED [None]
  - TRANSAMINASES INCREASED [None]
